FAERS Safety Report 23380645 (Version 1)
Quarter: 2024Q1

REPORT INFORMATION
  Report Type: Spontaneous
  Country: PL (occurrence: PL)
  Receive Date: 20240109
  Receipt Date: 20240109
  Transmission Date: 20240409
  Serious: Yes (Life-Threatening, Other)
  Sender: FDA-Public Use
  Company Number: PL-EMA-DD-20231220-7482691-122845

PATIENT
  Age: 72 Year
  Sex: Male

DRUGS (6)
  1. PEMETREXED [Suspect]
     Active Substance: PEMETREXED
     Indication: Lung adenocarcinoma
     Dosage: UNK, 1 CYCLICAL
     Route: 065
     Dates: start: 20210311
  2. PEMETREXED [Suspect]
     Active Substance: PEMETREXED
     Indication: Lung adenocarcinoma stage IV
     Dosage: UNK, 6 CYCLICAL
     Route: 065
     Dates: start: 20210311
  3. CARBOPLATIN [Suspect]
     Active Substance: CARBOPLATIN
     Indication: Lung adenocarcinoma
     Dosage: UNK UNK, CYCLICAL
     Route: 065
     Dates: start: 20210311
  4. CARBOPLATIN [Suspect]
     Active Substance: CARBOPLATIN
     Indication: Lung adenocarcinoma stage IV
     Dosage: UNK, 2 CYCLICAL
     Route: 065
     Dates: start: 20210311
  5. PEMBROLIZUMAB [Suspect]
     Active Substance: PEMBROLIZUMAB
     Indication: Lung adenocarcinoma
     Dosage: UNK, CYCLICAL
     Route: 065
     Dates: start: 20210311
  6. PEMBROLIZUMAB [Suspect]
     Active Substance: PEMBROLIZUMAB
     Indication: Lung adenocarcinoma stage IV
     Dosage: UNK, 2 CYCLICAL
     Route: 065
     Dates: start: 20210311

REACTIONS (9)
  - Neutropenia [Unknown]
  - Pancytopenia [Unknown]
  - Toxicity to various agents [Unknown]
  - Febrile neutropenia [Unknown]
  - Condition aggravated [Unknown]
  - Anaemia [Unknown]
  - Immune-mediated lung disease [Unknown]
  - Thrombocytopenia [Unknown]
  - Eastern Cooperative Oncology Group performance status worsened [Recovered/Resolved]

NARRATIVE: CASE EVENT DATE: 20210101
